FAERS Safety Report 12501252 (Version 2)
Quarter: 2016Q2

REPORT INFORMATION
  Report Type: Spontaneous
  Country: US (occurrence: US)
  Receive Date: 20160627
  Receipt Date: 20160630
  Transmission Date: 20160815
  Serious: No
  Sender: FDA-Public Use
  Company Number: US-SHIRE-US201606798

PATIENT
  Age: 10 Year
  Sex: Male
  Weight: 37.19 kg

DRUGS (11)
  1. INTUNIV [Suspect]
     Active Substance: GUANFACINE HYDROCHLORIDE
     Dosage: 2 MG, UNKNOWN
     Route: 048
     Dates: end: 201603
  2. INTUNIV [Suspect]
     Active Substance: GUANFACINE HYDROCHLORIDE
     Dosage: 1 MG, UNKNOWN
     Route: 048
     Dates: start: 20160321
  3. INTUNIV [Suspect]
     Active Substance: GUANFACINE HYDROCHLORIDE
     Dosage: 1 MG, UNKNOWN
     Route: 048
     Dates: start: 2014
  4. VYVANSE [Suspect]
     Active Substance: LISDEXAMFETAMINE DIMESYLATE
     Dosage: 10 MG, 1X/DAY:QD
     Route: 048
     Dates: start: 20160524, end: 20160527
  5. INTUNIV [Suspect]
     Active Substance: GUANFACINE HYDROCHLORIDE
     Indication: ATTENTION DEFICIT/HYPERACTIVITY DISORDER
     Dosage: 2 MG, UNKNOWN
     Route: 048
     Dates: end: 2015
  6. INTUNIV [Suspect]
     Active Substance: GUANFACINE HYDROCHLORIDE
     Dosage: UNK, UNKNOWN
     Route: 048
     Dates: start: 20160527
  7. VYVANSE [Suspect]
     Active Substance: LISDEXAMFETAMINE DIMESYLATE
     Dosage: 10 MG, 1X/DAY:QD
     Route: 048
     Dates: start: 20160307, end: 20160321
  8. INTUNIV [Suspect]
     Active Substance: GUANFACINE HYDROCHLORIDE
     Dosage: 2 MG, UNKNOWN
     Route: 048
     Dates: start: 2016, end: 20160523
  9. CLONIDINE. [Concomitant]
     Active Substance: CLONIDINE
     Indication: SLEEP DISORDER
     Dosage: 0.5 DF, 1X/DAY:QD (AT BEDTIME)
     Route: 065
     Dates: start: 2010
  10. VYVANSE [Suspect]
     Active Substance: LISDEXAMFETAMINE DIMESYLATE
     Indication: ATTENTION DEFICIT/HYPERACTIVITY DISORDER
     Dosage: UNK, UNKNOWN
     Route: 048
     Dates: start: 2009, end: 2009
  11. INTUNIV [Suspect]
     Active Substance: GUANFACINE HYDROCHLORIDE
     Dosage: 1 MG, UNKNOWN
     Route: 048

REACTIONS (10)
  - Somnolence [Recovered/Resolved]
  - Adverse drug reaction [Recovered/Resolved]
  - Product quality issue [Unknown]
  - Drug administered to patient of inappropriate age [Recovered/Resolved]
  - Tic [Recovering/Resolving]
  - Feeling abnormal [Unknown]
  - Drug effect increased [Recovered/Resolved]
  - Trichotillomania [Recovering/Resolving]
  - Disturbance in attention [Unknown]
  - Drug hypersensitivity [Unknown]

NARRATIVE: CASE EVENT DATE: 2009
